FAERS Safety Report 23486340 (Version 1)
Quarter: 2024Q1

REPORT INFORMATION
  Report Type: Spontaneous
  Country: None (occurrence: US)
  Receive Date: 20240206
  Receipt Date: 20240206
  Transmission Date: 20240410
  Serious: No
  Sender: FDA-Public Use
  Company Number: US-Amphastar Pharmaceuticals, Inc.-2152697

PATIENT
  Sex: Female

DRUGS (1)
  1. GANIRELIX ACETATE [Suspect]
     Active Substance: GANIRELIX ACETATE
     Indication: In vitro fertilisation
     Route: 058

REACTIONS (1)
  - Injection site reaction [Unknown]
